FAERS Safety Report 9803625 (Version 1)
Quarter: 2014Q1

REPORT INFORMATION
  Report Type: Spontaneous
  Country: US (occurrence: US)
  Receive Date: 20140108
  Receipt Date: 20140108
  Transmission Date: 20141002
  Serious: No
  Sender: FDA-Public Use
  Company Number: US-GLAXOSMITHKLINE-A1014618A

PATIENT
  Sex: Female

DRUGS (16)
  1. LOVAZA [Suspect]
     Indication: BLOOD TRIGLYCERIDES INCREASED
     Dosage: 2CAP TWICE PER DAY
     Route: 048
     Dates: start: 2010
  2. LEVOXYL [Concomitant]
  3. PREVACID [Concomitant]
  4. RAMIPRIL [Concomitant]
  5. FUROSEMIDE [Concomitant]
  6. POTASSIUM [Concomitant]
  7. ZETIA [Concomitant]
  8. LANTUS [Concomitant]
  9. NOVOLOG [Concomitant]
  10. BIOTIN [Concomitant]
  11. VITAMIN B COMPLEX 100 [Concomitant]
  12. ASPIRIN [Concomitant]
  13. TUMERIC [Concomitant]
  14. GARLIC [Concomitant]
  15. PREDNISONE [Concomitant]
  16. GLUMETZA [Concomitant]

REACTIONS (2)
  - Alanine aminotransferase increased [Not Recovered/Not Resolved]
  - Aspartate aminotransferase increased [Not Recovered/Not Resolved]
